FAERS Safety Report 5012711-8 (Version None)
Quarter: 2006Q2

REPORT INFORMATION
  Report Type: 
  Country: None (occurrence: None)
  Receive Date: 20060524
  Receipt Date: 20060511
  Transmission Date: 20061013
  Serious: Yes (Hospitalization)
  Sender: FDA-Public Use
  Company Number: 2006011109

PATIENT
  Age: 32 Year
  Sex: Female

DRUGS (9)
  1. SUTENT [Suspect]
     Indication: METASTATIC RENAL CELL CARCINOMA
     Dosage: 50 MG (50 MG DAILY INTERVAL; EVERY DAY) ORAL
     Route: 048
     Dates: start: 20051230, end: 20060316
  2. OXYCONTIN [Concomitant]
  3. OXYNORM (OXYCODONE HYDROCHLORIDE) [Concomitant]
  4. DICLOFENAC SODIUM [Concomitant]
  5. PARACETAMOL [Concomitant]
  6. CO-DANTHRAMER (DANTRON, POLOXAMER) [Concomitant]
  7. BISACODYL [Concomitant]
  8. LANSOPRAZOLE [Concomitant]
  9. NOZINAN (LEVOMEPROMAZINE) [Concomitant]

REACTIONS (10)
  - DRUG INTERACTION [None]
  - DYSPHAGIA [None]
  - ERYTHEMA [None]
  - LOCALISED OEDEMA [None]
  - LYMPHADENOPATHY [None]
  - NECK PAIN [None]
  - OEDEMA [None]
  - PAIN [None]
  - PHARYNGOLARYNGEAL PAIN [None]
  - RADIATION INJURY [None]
